FAERS Safety Report 14075965 (Version 1)
Quarter: 2017Q4

REPORT INFORMATION
  Report Type: Spontaneous
  Country: US (occurrence: US)
  Receive Date: 20171011
  Receipt Date: 20171011
  Transmission Date: 20180321
  Serious: Yes (Hospitalization, Other)
  Sender: FDA-Public Use
  Company Number: US-SA-2017SA139437

PATIENT
  Age: 77 Year
  Sex: Male
  Weight: 84.09 kg

DRUGS (12)
  1. ASPIRIN. [Concomitant]
     Active Substance: ASPIRIN
     Dosage: STRENGH: 81 MG
     Route: 065
  2. PRALUENT [Suspect]
     Active Substance: ALIROCUMAB
     Route: 058
     Dates: start: 201604, end: 2017
  3. SILDENAFIL. [Concomitant]
     Active Substance: SILDENAFIL
     Dosage: STRENGTH: 50 MG
     Route: 065
  4. ALIROCUMAB PREFILLED PEN [Suspect]
     Active Substance: ALIROCUMAB
     Dates: start: 201604, end: 2017
  5. FIBER [Concomitant]
     Active Substance: PSYLLIUM HUSK
     Route: 065
  6. RAMIPRIL. [Concomitant]
     Active Substance: RAMIPRIL
     Dosage: STRENGTH: 2.5 MG
     Route: 065
  7. SERTRALINE [Concomitant]
     Active Substance: SERTRALINE HYDROCHLORIDE
     Dosage: SERTRALINE 25 MG TO 50 MG Q.H.S. P.R.N.
     Route: 065
  8. VITAMIN D [Concomitant]
     Active Substance: CHOLECALCIFEROL
     Dosage: 4000 I.U.
     Route: 065
  9. AMLODIPINE [Concomitant]
     Active Substance: AMLODIPINE BESYLATE
     Dosage: STRENGH: 5 MG
     Route: 065
  10. DHEA [Concomitant]
     Active Substance: PRASTERONE
     Route: 065
  11. OMEPRAZOLE. [Concomitant]
     Active Substance: OMEPRAZOLE
     Dosage: STRENGTH: 20 MG
     Route: 065
  12. TRAZODONE [Concomitant]
     Active Substance: TRAZODONE HYDROCHLORIDE
     Dosage: 50 MG Q.H.S. P.R.N.
     Route: 065

REACTIONS (17)
  - Limb discomfort [Unknown]
  - Dyspnoea exertional [Unknown]
  - Joint swelling [Unknown]
  - Nocturia [Unknown]
  - Muscular weakness [Unknown]
  - Low density lipoprotein increased [Unknown]
  - Bladder hypertrophy [Unknown]
  - Pyelonephritis [Unknown]
  - Escherichia infection [Unknown]
  - Prostatic disorder [Unknown]
  - Renal ischaemia [Unknown]
  - Mobility decreased [Unknown]
  - Contusion [Unknown]
  - Genitourinary tract infection [Unknown]
  - Urosepsis [Unknown]
  - Diverticulitis [Unknown]
  - Urinary tract infection [Unknown]

NARRATIVE: CASE EVENT DATE: 20170811
